FAERS Safety Report 7551330-6 (Version None)
Quarter: 2011Q2

REPORT INFORMATION
  Report Type: 
  Country: None (occurrence: None)
  Receive Date: 20110609
  Receipt Date: 20110524
  Transmission Date: 20111010
  Serious: Yes (Other)
  Sender: FDA-Public Use
  Company Number: LTI2011A00115

PATIENT
  Age: 75 Year
  Sex: Male

DRUGS (6)
  1. RAMIPRIL [Concomitant]
  2. NOVONORM (REPAGLINIDE) [Concomitant]
  3. TAMSULOSIN HCL [Concomitant]
  4. ACTOS [Suspect]
     Indication: TYPE 2 DIABETES MELLITUS
     Dosage: 1 TAB. (1 TAB.,1 IN 1 D)
     Route: 048
     Dates: start: 20090101, end: 20110101
  5. FRACTAL (PLUVASTATIN) [Concomitant]
  6. IMOVANE [Concomitant]

REACTIONS (1)
  - TRANSITIONAL CELL CARCINOMA [None]
